FAERS Safety Report 18627421 (Version 1)
Quarter: 2020Q4

REPORT INFORMATION
  Report Type: Spontaneous
  Country: US (occurrence: US)
  Receive Date: 20201216
  Receipt Date: 20201216
  Transmission Date: 20210114
  Serious: Yes (Hospitalization)
  Sender: FDA-Public Use
  Company Number: None

PATIENT
  Age: 58 Year
  Sex: Female

DRUGS (1)
  1. HUMIRA [Suspect]
     Active Substance: ADALIMUMAB
     Indication: PULMONARY ARTERIAL HYPERTENSION
     Route: 058
     Dates: start: 20200618

REACTIONS (5)
  - Renal failure [None]
  - Spinal cord abscess [None]
  - Immunosuppression [None]
  - Staphylococcal infection [None]
  - Fall [None]

NARRATIVE: CASE EVENT DATE: 20201114
